FAERS Safety Report 7503617-0 (Version None)
Quarter: 2011Q2

REPORT INFORMATION
  Report Type: 
  Country: None (occurrence: None)
  Receive Date: 20110518
  Receipt Date: 20110503
  Transmission Date: 20111010
  Serious: Yes (Hospitalization)
  Sender: FDA-Public Use
  Company Number: AUR-APL-2011-01538

PATIENT
  Age: 87 Year
  Sex: Female

DRUGS (9)
  1. SIMVASTATIN [Concomitant]
  2. BIMATOPROST [Concomitant]
  3. ACETAMINOPHEN [Concomitant]
  4. CITALOPRAM HYDROBROMIDE [Suspect]
     Indication: ANXIETY
     Dosage: 10 MG, ORAL
     Route: 048
     Dates: start: 20110228, end: 20110317
  5. CITALOPRAM HYDROBROMIDE [Suspect]
     Indication: DEPRESSION
     Dosage: 10 MG, ORAL
     Route: 048
     Dates: start: 20110228, end: 20110317
  6. BRIMONIDINE TARTRATE [Concomitant]
  7. ASPIRIN [Concomitant]
  8. CALCICHEW D3 [Concomitant]
  9. LANASOPRAZOLE [Concomitant]

REACTIONS (6)
  - CONFUSIONAL STATE [None]
  - LETHARGY [None]
  - BLOOD SODIUM DECREASED [None]
  - ASTHENIA [None]
  - PRESYNCOPE [None]
  - MALAISE [None]
